FAERS Safety Report 8992046 (Version 1)
Quarter: 2012Q4

REPORT INFORMATION
  Report Type: 
  Country: US (occurrence: US)
  Receive Date: 20121231
  Receipt Date: 20121231
  Transmission Date: 20130627
  Serious: Yes (Life-Threatening, Hospitalization, Other)
  Sender: FDA-Public Use
  Company Number: US-ELI_LILLY_AND_COMPANY-US201212008275

PATIENT
  Sex: Male

DRUGS (3)
  1. HUMULIN REGULAR [Suspect]
     Indication: TYPE 2 DIABETES MELLITUS
     Dosage: 20 u, tid
     Dates: end: 20121001
  2. HUMULIN REGULAR [Suspect]
     Indication: TYPE 2 DIABETES MELLITUS
     Dosage: UNK UNK, prn
     Dates: start: 20121001
  3. LANTUS [Concomitant]
     Dosage: 35 u, each morning

REACTIONS (6)
  - Cardiac arrest [Unknown]
  - Atrial fibrillation [Unknown]
  - Asthenia [Unknown]
  - Decreased appetite [Unknown]
  - Oedema peripheral [Not Recovered/Not Resolved]
  - Incorrect dose administered [Recovered/Resolved]
